FAERS Safety Report 18243374 (Version 1)
Quarter: 2020Q3

REPORT INFORMATION
  Report Type: Spontaneous
  Country: US (occurrence: US)
  Receive Date: 20200908
  Receipt Date: 20200908
  Transmission Date: 20201103
  Serious: No
  Sender: FDA-Public Use
  Company Number: US-HARMONY BIOSCIENCES-2020HMY01047

PATIENT
  Sex: Female
  Weight: 99.32 kg

DRUGS (6)
  1. WAKIX [Suspect]
     Active Substance: PITOLISANT HYDROCHLORIDE
     Indication: NARCOLEPSY
     Dosage: 8.9 MG, 1X/DAY IN THE MORNING
     Route: 048
     Dates: start: 2020, end: 2020
  2. XYREM [Suspect]
     Active Substance: SODIUM OXYBATE
     Dosage: UNK, 2X/DAY
     Dates: end: 202006
  3. XYREM [Suspect]
     Active Substance: SODIUM OXYBATE
     Dosage: REMOVED SECOND DOSE, NOW 1X/DAY
     Dates: start: 202006
  4. WAKIX [Suspect]
     Active Substance: PITOLISANT HYDROCHLORIDE
     Indication: CATAPLEXY
  5. WAKIX [Suspect]
     Active Substance: PITOLISANT HYDROCHLORIDE
     Indication: CATAPLEXY
     Dosage: 35.6 MG, 1X/DAY IN THE MORNING
     Route: 048
     Dates: start: 2020, end: 202006
  6. WAKIX [Suspect]
     Active Substance: PITOLISANT HYDROCHLORIDE
     Indication: NARCOLEPSY
     Dosage: 17.8 MG, 1X/DAY IN THE MORNING
     Route: 048
     Dates: start: 2020, end: 2020

REACTIONS (5)
  - Poor quality sleep [Unknown]
  - Drug ineffective [Recovered/Resolved]
  - Middle insomnia [Unknown]
  - Insomnia [Unknown]
  - Confusional state [Recovered/Resolved]

NARRATIVE: CASE EVENT DATE: 2020
